FAERS Safety Report 13021611 (Version 1)
Quarter: 2016Q4

REPORT INFORMATION
  Report Type: Spontaneous
  Country: US (occurrence: US)
  Receive Date: 20161213
  Receipt Date: 20161213
  Transmission Date: 20170207
  Serious: No
  Sender: FDA-Public Use
  Company Number: US-BAYER-2016-234529

PATIENT
  Age: 71 Year
  Sex: Female
  Weight: 55.78 kg

DRUGS (4)
  1. BAYER LOW DOSE [Concomitant]
     Active Substance: ASPIRIN
  2. MIRALAX [Suspect]
     Active Substance: POLYETHYLENE GLYCOL 3350
     Indication: GASTROINTESTINAL DISORDER
     Dosage: 1 DF, QD
     Route: 048
     Dates: start: 2014, end: 20161208
  3. VESICARE [Concomitant]
     Active Substance: SOLIFENACIN SUCCINATE
  4. CALCIUM D [Concomitant]
     Active Substance: CALCIUM\VITAMIN D

REACTIONS (1)
  - Product use issue [Unknown]

NARRATIVE: CASE EVENT DATE: 2014
